FAERS Safety Report 6652032-0 (Version None)
Quarter: 2010Q1

REPORT INFORMATION
  Report Type: 
  Country: None (occurrence: None)
  Receive Date: 20100323
  Receipt Date: 20100310
  Transmission Date: 20100710
  Serious: Yes (Hospitalization)
  Sender: FDA-Public Use
  Company Number: 006280

PATIENT
  Sex: Male
  Weight: 73 kg

DRUGS (4)
  1. KEPPRA [Suspect]
     Indication: EPILEPSY
     Dosage: (500 MG BID ORAL)
     Route: 048
     Dates: start: 20100131, end: 20100203
  2. CAPECITABINE [Suspect]
     Indication: GASTRIC CANCER
     Dosage: (1500 MG BID ORAL)
     Route: 048
     Dates: start: 20080101
  3. ASPIRIN [Concomitant]
  4. XYLODASE [Concomitant]

REACTIONS (4)
  - ANAEMIA MACROCYTIC [None]
  - DRUG INTERACTION [None]
  - RHABDOMYOLYSIS [None]
  - VITAMIN B12 DECREASED [None]
